FAERS Safety Report 6238012 (Version 5)
Quarter: 2015Q1

REPORT INFORMATION
  Report Type: Report from Study
  Country: FR (occurrence: FR)
  Receive Date: 20070214
  Receipt Date: 20150206
  Transmission Date: 20150721
  Serious: Yes (Death, Life-Threatening, Hospitalization)
  Sender: FDA-Public Use
  Company Number: FR-PFIZER INC-2007007763

PATIENT
  Age: 62 Year
  Sex: Male
  Weight: 72 kg

DRUGS (9)
  1. DI-ANTALVIC [Concomitant]
     Active Substance: ACETAMINOPHEN\PROPOXYPHENE HYDROCHLORIDE
     Route: 048
     Dates: start: 200604
  2. VALSARTAN. [Concomitant]
     Active Substance: VALSARTAN
     Route: 048
     Dates: start: 1999
  3. SUNITINIB MALATE [Suspect]
     Active Substance: SUNITINIB MALATE
     Indication: HEPATOCELLULAR CARCINOMA
     Dosage: 50 MG, 4 WEEKS ON AND 2 WEEKS OFF
     Route: 048
     Dates: start: 20060420, end: 20070124
  4. METHYLPREDNISOLONE. [Concomitant]
     Active Substance: METHYLPREDNISOLONE
     Route: 048
     Dates: start: 1990
  5. DIFLUCORTOLONE VALERATE [Concomitant]
     Active Substance: DIFLUCORTOLONE VALERATE
     Route: 048
     Dates: start: 20060503
  6. OXYCODONE [Concomitant]
     Active Substance: OXYCODONE
     Route: 048
     Dates: start: 20070125
  7. BUFEXAMAC [Concomitant]
     Active Substance: BUFEXAMAC
     Route: 061
     Dates: start: 20061003
  8. PRAVASTATIN SODIUM. [Concomitant]
     Active Substance: PRAVASTATIN SODIUM
     Route: 048
     Dates: start: 2006
  9. BROMAZEPAM [Concomitant]
     Active Substance: BROMAZEPAM
     Route: 048
     Dates: start: 200605

REACTIONS (5)
  - Hyperuricaemia [Unknown]
  - Renal failure [Fatal]
  - Blood creatine increased [Unknown]
  - Pain [Unknown]
  - Coma [Unknown]

NARRATIVE: CASE EVENT DATE: 20070124
